FAERS Safety Report 10148865 (Version 2)
Quarter: 2014Q2

REPORT INFORMATION
  Report Type: Report from Study
  Country: PL (occurrence: PL)
  Receive Date: 20140502
  Receipt Date: 20140521
  Transmission Date: 20141212
  Serious: Yes (Other)
  Sender: FDA-Public Use
  Company Number: PL-ROCHE-1392405

PATIENT
  Age: 70 Year
  Sex: Female

DRUGS (5)
  1. MABTHERA [Suspect]
     Indication: LYMPHOMA
     Route: 065
  2. CYCLOPHOSPHAMIDE [Concomitant]
     Indication: LYMPHOMA
     Route: 065
     Dates: start: 20071016
  3. DOXORUBICIN [Concomitant]
     Indication: LYMPHOMA
     Route: 065
     Dates: start: 20071016
  4. VINCRISTINE [Concomitant]
     Indication: LYMPHOMA
     Route: 065
     Dates: start: 20071016
  5. PREDNISOLONE [Concomitant]
     Indication: LYMPHOMA
     Route: 065
     Dates: start: 20071016

REACTIONS (7)
  - Sepsis [Unknown]
  - Ischaemic stroke [Unknown]
  - Agranulocytosis [Unknown]
  - Visual impairment [Unknown]
  - Infection [Unknown]
  - Headache [Unknown]
  - Dizziness [Unknown]
